FAERS Safety Report 6074089-0 (Version None)
Quarter: 2009Q1

REPORT INFORMATION
  Report Type: 
  Country: None (occurrence: None)
  Receive Date: 20090211
  Receipt Date: 20090204
  Transmission Date: 20090719
  Serious: Yes (Other)
  Sender: FDA-Public Use
  Company Number: A0767782A

PATIENT
  Age: 38 Year
  Sex: Male

DRUGS (2)
  1. PAXIL CR [Suspect]
     Indication: DEPRESSION
     Dosage: 12.5MG PER DAY
     Route: 048
     Dates: start: 20090130
  2. RANITIDINE [Concomitant]

REACTIONS (3)
  - ANXIETY [None]
  - HEADACHE [None]
  - TREMOR [None]
